FAERS Safety Report 5151535-8 (Version None)
Quarter: 2006Q4

REPORT INFORMATION
  Report Type: 
  Country: None (occurrence: None)
  Receive Date: 20061115
  Receipt Date: 20040726
  Transmission Date: 20070319
  Serious: Yes (Hospitalization)
  Sender: FDA-Public Use
  Company Number: US-ROCHE-375271

PATIENT
  Age: 69 Year
  Sex: Male
  Weight: 74.9 kg

DRUGS (2)
  1. DACLIZUMAB [Suspect]
     Dosage: TOTAL OF 4 DOSES.
     Route: 042
     Dates: start: 20031215, end: 20040126
  2. PLACEBO [Suspect]
     Route: 042
     Dates: start: 20031228

REACTIONS (1)
  - PNEUMONIA [None]
